FAERS Safety Report 9646776 (Version 2)
Quarter: 2013Q4

REPORT INFORMATION
  Report Type: Spontaneous
  Country: US (occurrence: US)
  Receive Date: 20131027
  Receipt Date: 20131027
  Transmission Date: 20140711
  Serious: Yes (Other)
  Sender: FDA-Public Use
  Company Number: US-NAPPMUNDI-USA-2010-0053556

PATIENT
  Sex: Male

DRUGS (4)
  1. OXYCONTIN (NDA 22-272) [Suspect]
     Indication: BACK PAIN
     Dosage: 80 MG, UNK
  2. OXYCONTIN (NDA 22-272) [Suspect]
     Indication: NERVE INJURY
  3. OXYCODONE HCL IR CAPSULES [Concomitant]
     Indication: BACK PAIN
     Dosage: 5 MG, UNK
  4. OXYCODONE HCL IR CAPSULES [Concomitant]
     Indication: NERVE INJURY

REACTIONS (10)
  - Hallucination, visual [Recovered/Resolved]
  - Medication residue present [Unknown]
  - Pain [Unknown]
  - Dysuria [Recovered/Resolved]
  - Constipation [Recovered/Resolved]
  - Swelling [Recovered/Resolved]
  - Product quality issue [Recovered/Resolved]
  - Somnolence [Recovered/Resolved]
  - Memory impairment [Recovered/Resolved]
  - Drug effect increased [Recovered/Resolved]
